FAERS Safety Report 25089886 (Version 1)
Quarter: 2025Q1

REPORT INFORMATION
  Report Type: Spontaneous
  Country: US (occurrence: None)
  Receive Date: 20250317
  Receipt Date: 20250317
  Transmission Date: 20250408
  Serious: Yes (Life-Threatening, Hospitalization, Disabling, Other)
  Sender: FDA-CTU
  Company Number: None

PATIENT
  Age: 70 Year
  Sex: Male
  Weight: 89.1 kg

DRUGS (8)
  1. PEGLOTICASE [Suspect]
     Active Substance: PEGLOTICASE
     Indication: Gout
     Route: 042
     Dates: start: 20241215, end: 20250114
  2. ATERVORSATATIN [Concomitant]
  3. ALLPPURINOL [Concomitant]
  4. TRAMADOL [Concomitant]
     Active Substance: TRAMADOL
  5. AMBIEN [Concomitant]
     Active Substance: ZOLPIDEM TARTRATE
  6. PREDNISONE [Concomitant]
     Active Substance: PREDNISONE
  7. TYLENOL [Concomitant]
     Active Substance: ACETAMINOPHEN
  8. MIRALAX [Concomitant]
     Active Substance: POLYETHYLENE GLYCOL 3350

REACTIONS (6)
  - Movement disorder [None]
  - Asthenia [None]
  - Loss of personal independence in daily activities [None]
  - Impaired work ability [None]
  - Toxicity to various agents [None]
  - Gait inability [None]

NARRATIVE: CASE EVENT DATE: 20250113
